FAERS Safety Report 7650389-5 (Version None)
Quarter: 2011Q3

REPORT INFORMATION
  Report Type: 
  Country: None (occurrence: None)
  Receive Date: 20110802
  Receipt Date: 20110727
  Transmission Date: 20111222
  Serious: Yes (Other)
  Sender: FDA-Public Use
  Company Number: US-BRACCO-006559

PATIENT
  Age: 63 Year
  Sex: Male

DRUGS (1)
  1. E-Z-HD [Suspect]
     Indication: GASTROINTESTINAL SCAN
     Route: 048
     Dates: start: 20110727, end: 20110727

REACTIONS (2)
  - ASPIRATION [None]
  - HYPOXIA [None]
